FAERS Safety Report 18611829 (Version 2)
Quarter: 2020Q4

REPORT INFORMATION
  Report Type: Report from Study
  Country: None (occurrence: US)
  Receive Date: 20201214
  Receipt Date: 20201215
  Transmission Date: 20210114
  Serious: Yes (Hospitalization)
  Sender: FDA-Public Use
  Company Number: US-ABBVIE-20K-163-3687025-00

PATIENT
  Sex: Female

DRUGS (1)
  1. HUMIRA [Suspect]
     Active Substance: ADALIMUMAB
     Indication: PSORIASIS
     Dosage: CITRATE FREE
     Route: 058
     Dates: start: 202007

REACTIONS (6)
  - Blood pressure increased [Unknown]
  - Lymphadenopathy [Unknown]
  - Anxiety [Unknown]
  - Cardiac disorder [Unknown]
  - Dyspnoea [Unknown]
  - Viral infection [Unknown]

NARRATIVE: CASE EVENT DATE: 2020
